FAERS Safety Report 10862925 (Version 1)
Quarter: 2015Q1

REPORT INFORMATION
  Report Type: Spontaneous
  Country: None (occurrence: None)
  Receive Date: 20150219
  Receipt Date: 20150219
  Transmission Date: 20150721
  Serious: No
  Sender: FDA-Public Use
  Company Number: None

PATIENT
  Age: 43 Year
  Sex: Male

DRUGS (1)
  1. HUMIRA [Suspect]
     Active Substance: ADALIMUMAB
     Indication: PSORIATIC ARTHROPATHY
     Route: 058
     Dates: start: 20150126

REACTIONS (4)
  - Psoriatic arthropathy [None]
  - Hypoaesthesia [None]
  - Disease recurrence [None]
  - Paraesthesia [None]

NARRATIVE: CASE EVENT DATE: 20150127
